FAERS Safety Report 25170251 (Version 2)
Quarter: 2025Q2

REPORT INFORMATION
  Report Type: Report from Study
  Country: CA (occurrence: CA)
  Receive Date: 20250407
  Receipt Date: 20250513
  Transmission Date: 20250717
  Serious: Yes (Death, Hospitalization, Other)
  Sender: ABBVIE
  Company Number: CA-ABBVIE-6207365

PATIENT
  Age: 70 Year
  Sex: Female
  Weight: 65 kg

DRUGS (2)
  1. VENCLEXTA [Suspect]
     Active Substance: VENETOCLAX
     Indication: Acute myeloid leukaemia
     Dosage: FORM STRENGTH: 100 MG
     Route: 048
     Dates: start: 20250303, end: 20250317
  2. AZACITIDINE [Concomitant]
     Active Substance: AZACITIDINE
     Indication: Product used for unknown indication

REACTIONS (6)
  - Sepsis [Fatal]
  - Septic shock [Unknown]
  - Wound [Unknown]
  - Full blood count decreased [Unknown]
  - Platelet count decreased [Unknown]
  - Skin infection [Recovered/Resolved]

NARRATIVE: CASE EVENT DATE: 20250101
